FAERS Safety Report 7385892-9 (Version None)
Quarter: 2011Q1

REPORT INFORMATION
  Report Type: 
  Country: None (occurrence: None)
  Receive Date: 20110331
  Receipt Date: 20110324
  Transmission Date: 20110831
  Serious: Yes (Other)
  Sender: FDA-Public Use
  Company Number: US-PFIZER INC-2011066365

PATIENT
  Sex: Male
  Weight: 86.168 kg

DRUGS (6)
  1. NADOLOL [Concomitant]
     Indication: BLOOD PRESSURE ABNORMAL
     Dosage: 40 MG, 4X/DAY
  2. DOXEPIN HCL [Suspect]
     Dosage: UNK
  3. VICODIN [Concomitant]
     Indication: PAIN
     Dosage: UNK, 3-4 A DAY
  4. PRINIVIL [Suspect]
     Indication: BLOOD PRESSURE ABNORMAL
     Dosage: UNK
  5. VIAGRA [Suspect]
     Indication: ERECTILE DYSFUNCTION
     Dosage: 50 MG, AS NEEDED
     Route: 048
     Dates: start: 20110315
  6. TESTOSTERONE [Concomitant]
     Dosage: 150 ML, UNK

REACTIONS (5)
  - BURNING SENSATION [None]
  - FLUSHING [None]
  - BLOOD PRESSURE DECREASED [None]
  - ERYTHEMA [None]
  - BLOOD PRESSURE INCREASED [None]
